FAERS Safety Report 10036228 (Version 1)
Quarter: 2014Q1

REPORT INFORMATION
  Report Type: Spontaneous
  Country: US (occurrence: US)
  Receive Date: 20140325
  Receipt Date: 20140325
  Transmission Date: 20141002
  Serious: Yes (Hospitalization)
  Sender: FDA-Public Use
  Company Number: US-TAKEDA-2014TUS002278

PATIENT
  Sex: 0

DRUGS (1)
  1. OSENI [Suspect]
     Indication: TYPE 2 DIABETES MELLITUS
     Dosage: 25 MG/15 MG, QD
     Route: 048

REACTIONS (1)
  - Hypertension [Unknown]
